FAERS Safety Report 13500581 (Version 4)
Quarter: 2019Q4

REPORT INFORMATION
  Report Type: Spontaneous
  Country: US (occurrence: US)
  Receive Date: 20170501
  Receipt Date: 20191227
  Transmission Date: 20200122
  Serious: Yes (Other)
  Sender: FDA-Public Use
  Company Number: US-ELI_LILLY_AND_COMPANY-US201705000155

PATIENT
  Age: 60 Year
  Sex: Male

DRUGS (16)
  1. VIAGRA [Suspect]
     Active Substance: SILDENAFIL CITRATE
     Indication: BENIGN PROSTATIC HYPERPLASIA
  2. METOPROLOL SUCCINATE. [Concomitant]
     Active Substance: METOPROLOL SUCCINATE
     Indication: BLOOD PRESSURE MEASUREMENT
     Dosage: UNK
     Dates: start: 20140211
  3. QUETIAPINE. [Concomitant]
     Active Substance: QUETIAPINE
     Indication: MENTAL DISORDER
     Dosage: UNK
     Dates: start: 20140131
  4. CIALIS [Suspect]
     Active Substance: TADALAFIL
     Indication: ERECTILE DYSFUNCTION
     Dosage: UNK UNK, PRN
     Route: 065
     Dates: start: 20091005, end: 20111128
  5. FLUOROURACIL. [Concomitant]
     Active Substance: FLUOROURACIL
     Indication: NEOPLASM SKIN
     Dosage: UNK
     Dates: start: 20150108
  6. VIAGRA [Suspect]
     Active Substance: SILDENAFIL CITRATE
     Indication: ERECTILE DYSFUNCTION
     Dosage: UNK UNK, PRN
     Route: 065
     Dates: start: 20111128, end: 20111128
  7. LEVITRA [Concomitant]
     Active Substance: VARDENAFIL HYDROCHLORIDE
     Indication: ERECTILE DYSFUNCTION
     Dosage: 10 MG, DAILY
     Dates: start: 201111
  8. DOXYCYCLINE. [Concomitant]
     Active Substance: DOXYCYCLINE
     Indication: ROSACEA
     Dosage: UNK
     Dates: start: 20141112
  9. VIAGRA [Suspect]
     Active Substance: SILDENAFIL CITRATE
     Indication: PROSTATITIS
  10. ALBUTEROL [SALBUTAMOL] [Concomitant]
     Active Substance: ALBUTEROL
     Indication: DYSPNOEA
     Dosage: UNK
     Dates: start: 20140808
  11. CIALIS [Suspect]
     Active Substance: TADALAFIL
     Indication: BENIGN PROSTATIC HYPERPLASIA
  12. HYDROCODONE/ACETAMINOPHEN [Concomitant]
     Active Substance: ACETAMINOPHEN\HYDROCODONE
     Indication: PAIN
     Dosage: UNK
     Dates: start: 20130716
  13. CIALIS [Suspect]
     Active Substance: TADALAFIL
     Indication: PROSTATITIS
  14. FLOMAX [MORNIFLUMATE] [Concomitant]
     Active Substance: MORNIFLUMATE
     Indication: PROSTATOMEGALY
     Dosage: 0.4 MG, DAILY
     Dates: start: 20050505, end: 20090226
  15. ADVAIR HFA [Concomitant]
     Active Substance: FLUTICASONE PROPIONATE\SALMETEROL XINAFOATE
     Indication: LUNG DISORDER
     Dosage: UNK
     Dates: start: 20140808
  16. WARFARIN [Concomitant]
     Active Substance: WARFARIN
     Indication: THROMBOSIS
     Dosage: UNK
     Dates: start: 20150115

REACTIONS (3)
  - Depression [Not Recovered/Not Resolved]
  - Malignant melanoma [Unknown]
  - Mental disorder [Unknown]

NARRATIVE: CASE EVENT DATE: 20120802
